FAERS Safety Report 24534175 (Version 1)
Quarter: 2024Q4

REPORT INFORMATION
  Report Type: Spontaneous
  Country: US (occurrence: None)
  Receive Date: 20241021
  Receipt Date: 20241021
  Transmission Date: 20250115
  Serious: Yes (Other)
  Sender: Public
  Company Number: None

PATIENT
  Age: 49 Year
  Sex: Male
  Weight: 74.7 kg

DRUGS (1)
  1. SUBLOCADE [Suspect]
     Active Substance: BUPRENORPHINE
     Indication: Drug use disorder

REACTIONS (2)
  - Injection site swelling [None]
  - Injection site discolouration [None]

NARRATIVE: CASE EVENT DATE: 20240918
